FAERS Safety Report 11938747 (Version 3)
Quarter: 2016Q1

REPORT INFORMATION
  Report Type: Other
  Country: IT (occurrence: IT)
  Receive Date: 20160122
  Receipt Date: 20160209
  Transmission Date: 20160526
  Serious: Yes (Hospitalization)
  Sender: FDA-Public Use
  Company Number: IT-MYLANLABS-2016M1002890

PATIENT

DRUGS (4)
  1. ESCITALOPRAM [Suspect]
     Active Substance: ESCITALOPRAM OXALATE
     Indication: PERSONALITY DISORDER
     Dosage: UNK
     Dates: start: 2015, end: 2015
  2. OLANZAPINE. [Suspect]
     Active Substance: OLANZAPINE
     Indication: PERSONALITY DISORDER
     Dosage: UNK
     Dates: start: 2015, end: 2015
  3. OLANZAPINE. [Suspect]
     Active Substance: OLANZAPINE
     Dosage: 22.5 MG, QD
     Route: 048
     Dates: start: 20151223, end: 20151223
  4. ESCITALOPRAM [Suspect]
     Active Substance: ESCITALOPRAM OXALATE
     Dosage: 190 MG, TOTAL
     Route: 048
     Dates: start: 20151223, end: 20151223

REACTIONS (4)
  - Electrocardiogram QT prolonged [Unknown]
  - Intentional overdose [Unknown]
  - Malaise [Unknown]
  - Intentional self-injury [Unknown]

NARRATIVE: CASE EVENT DATE: 20151223
